FAERS Safety Report 6102545-5 (Version None)
Quarter: 2009Q1

REPORT INFORMATION
  Report Type: 
  Country: None (occurrence: None)
  Receive Date: 20090304
  Receipt Date: 20080813
  Transmission Date: 20090719
  Serious: No
  Sender: FDA-Public Use
  Company Number: A0742445A

PATIENT
  Age: 68 Year
  Sex: Female

DRUGS (6)
  1. REQUIP [Suspect]
     Indication: PARKINSON'S DISEASE
     Dosage: .5MG THREE TIMES PER DAY
     Route: 048
     Dates: start: 20080301
  2. SINEMET [Concomitant]
  3. EXFORGE [Concomitant]
  4. CYMBALTA [Concomitant]
  5. HYDROCHLOROTHIAZIDE [Concomitant]
  6. THYROID TAB [Concomitant]

REACTIONS (8)
  - ANXIETY [None]
  - DIZZINESS [None]
  - EXCESSIVE SEXUAL FANTASIES [None]
  - FALL [None]
  - HYPERHIDROSIS [None]
  - IMPULSIVE BEHAVIOUR [None]
  - NAUSEA [None]
  - SOMNOLENCE [None]
